FAERS Safety Report 10631830 (Version 1)
Quarter: 2014Q4

REPORT INFORMATION
  Report Type: Spontaneous
  Country: US (occurrence: US)
  Receive Date: 20141205
  Receipt Date: 20141205
  Transmission Date: 20150529
  Serious: No
  Sender: FDA-Public Use
  Company Number: US-BRISTOL-MYERS SQUIBB COMPANY-21495742

PATIENT
  Age: 59 Year
  Sex: Female
  Weight: 77.1 kg

DRUGS (11)
  1. LISINOPRIL. [Concomitant]
     Active Substance: LISINOPRIL
  2. TRICOR [Concomitant]
     Active Substance: FENOFIBRATE
  3. MAGNESIUM [Concomitant]
     Active Substance: MAGNESIUM
  4. LEVEMIR [Concomitant]
     Active Substance: INSULIN DETEMIR
  5. SERTRALINE [Concomitant]
     Active Substance: SERTRALINE HYDROCHLORIDE
  6. METFORMIN [Concomitant]
     Active Substance: METFORMIN HYDROCHLORIDE
  7. GLIPIZIDE. [Concomitant]
     Active Substance: GLIPIZIDE
  8. MULTIVITAMIN [Concomitant]
     Active Substance: VITAMINS
  9. FARXIGA [Suspect]
     Active Substance: DAPAGLIFLOZIN PROPANEDIOL
     Dosage: 5 MG FOR 2 WEEKS
     Dates: start: 201405
  10. SYNTHROID [Concomitant]
     Active Substance: LEVOTHYROXINE SODIUM
  11. VITAMIN D [Concomitant]
     Active Substance: CHOLECALCIFEROL

REACTIONS (2)
  - Drug dose omission [Unknown]
  - Fungal infection [Unknown]

NARRATIVE: CASE EVENT DATE: 201405
